FAERS Safety Report 16016490 (Version 1)
Quarter: 2019Q1

REPORT INFORMATION
  Report Type: Spontaneous
  Country: GB (occurrence: GB)
  Receive Date: 20190228
  Receipt Date: 20190228
  Transmission Date: 20190418
  Serious: No
  Sender: FDA-Public Use
  Company Number: None

PATIENT
  Age: 24 Year
  Sex: Female

DRUGS (1)
  1. NARS PURE RADIANT TINTED MOISTURIZER FINLAND [Suspect]
     Active Substance: OCTINOXATE\TITANIUM DIOXIDE
     Dosage: ?          QUANTITY:1 1;?
     Route: 061

REACTIONS (6)
  - Product formulation issue [None]
  - Rash [None]
  - Skin irritation [None]
  - Hyperaesthesia [None]
  - Self esteem decreased [None]
  - Emotional distress [None]

NARRATIVE: CASE EVENT DATE: 20190226
